FAERS Safety Report 9870973 (Version 1)
Quarter: 2014Q1

REPORT INFORMATION
  Report Type: Spontaneous
  Country: FR (occurrence: None)
  Receive Date: 20140203
  Receipt Date: 20140203
  Transmission Date: 20141002
  Serious: Yes (Hospitalization)
  Sender: FDA-Public Use
  Company Number: FR-20140024

PATIENT
  Age: 31 Year
  Sex: Male

DRUGS (1)
  1. LIPIODOL [Suspect]
     Indication: THERAPEUTIC EMBOLISATION
     Route: 013
     Dates: start: 20101116, end: 20101116

REACTIONS (1)
  - Rhabdomyolysis [None]
